FAERS Safety Report 24634651 (Version 1)
Quarter: 2024Q4

REPORT INFORMATION
  Report Type: Spontaneous
  Country: DE (occurrence: DE)
  Receive Date: 20241119
  Receipt Date: 20241119
  Transmission Date: 20250115
  Serious: Yes (Hospitalization)
  Sender: SAMSUNG BIOEPIS
  Company Number: DE-DCGMA-24203670

PATIENT
  Age: 25 Year
  Sex: Female
  Weight: 48 kg

DRUGS (5)
  1. ETANERCEPT [Suspect]
     Active Substance: ETANERCEPT
     Indication: Rheumatoid arthritis
     Route: 058
     Dates: start: 201907
  2. HYDROXYCHLOROQUINE [Concomitant]
     Active Substance: HYDROXYCHLOROQUINE
     Indication: Cutaneous lupus erythematosus
     Route: 048
     Dates: start: 202102
  3. ARCOXIA [Concomitant]
     Active Substance: ETORICOXIB
     Indication: Rheumatoid arthritis
     Route: 048
  4. AMLODIPINE BESYLATE [Concomitant]
     Active Substance: AMLODIPINE BESYLATE
     Indication: Raynaud^s phenomenon
     Route: 048
  5. VITAMIN D [Concomitant]
     Active Substance: VITAMIN D NOS
     Indication: Vitamin D deficiency
     Route: 048

REACTIONS (1)
  - Chronic lymphocytic inflammation with pontine perivascular enhancement responsive to steroids [Not Recovered/Not Resolved]

NARRATIVE: CASE EVENT DATE: 20240101
